FAERS Safety Report 6244885-5 (Version None)
Quarter: 2009Q2

REPORT INFORMATION
  Report Type: 
  Country: None (occurrence: None)
  Receive Date: 20090625
  Receipt Date: 20090617
  Transmission Date: 20091009
  Serious: Yes (Hospitalization)
  Sender: FDA-Public Use
  Company Number: B0579358A

PATIENT
  Sex: Female

DRUGS (5)
  1. AMOXICILLIN TRIHYDRATE [Suspect]
     Route: 065
     Dates: start: 20090327, end: 20090331
  2. ZOVIRAX [Suspect]
     Dates: start: 20090327
  3. VANCOMYCIN [Suspect]
     Route: 065
     Dates: start: 20090327, end: 20090331
  4. GENTAMYCIN SULFATE [Suspect]
     Dates: start: 20090327, end: 20090331
  5. CLAFORAN [Suspect]
     Dates: start: 20090327, end: 20090331

REACTIONS (1)
  - RENAL FAILURE ACUTE [None]
